FAERS Safety Report 7477995-5 (Version None)
Quarter: 2011Q2

REPORT INFORMATION
  Report Type: 
  Country: None (occurrence: None)
  Receive Date: 20110513
  Receipt Date: 20110502
  Transmission Date: 20111010
  Serious: Yes (Hospitalization)
  Sender: FDA-Public Use
  Company Number: FR-BAYER-2011-037465

PATIENT
  Age: 38 Year
  Sex: Female

DRUGS (5)
  1. MOXIFLOXACIN HCL [Suspect]
     Indication: MYCOBACTERIAL INFECTION
     Dosage: 400 MG, UNK
     Route: 048
     Dates: start: 20100707
  2. AMIKACIN [Suspect]
     Indication: MYCOBACTERIAL INFECTION
     Dosage: UNK
     Dates: start: 20100707
  3. ZYVOX [Suspect]
     Indication: MYCOBACTERIAL INFECTION
     Dosage: 600 MG, UNK
     Route: 048
     Dates: start: 20100707
  4. PASER [Suspect]
     Indication: MYCOBACTERIAL INFECTION
     Dosage: UNK
     Route: 048
     Dates: start: 20100707, end: 20100816
  5. CYCLOSERINE [Suspect]
     Indication: MYCOBACTERIAL INFECTION
     Dosage: 250 KIU, UNK
     Route: 048
     Dates: start: 20100707

REACTIONS (2)
  - APLASIA PURE RED CELL [None]
  - ANAEMIA [None]
